FAERS Safety Report 17509320 (Version 1)
Quarter: 2020Q1

REPORT INFORMATION
  Report Type: Spontaneous
  Country: IT (occurrence: IT)
  Receive Date: 20200306
  Receipt Date: 20200306
  Transmission Date: 20200409
  Serious: Yes (Other)
  Sender: FDA-Public Use
  Company Number: IT-REGENERON PHARMACEUTICALS, INC.-2020-23475

PATIENT

DRUGS (1)
  1. LIBTAYO [Suspect]
     Active Substance: CEMIPLIMAB-RWLC
     Indication: SQUAMOUS CELL CARCINOMA
     Dosage: THE PATIENT RECEIVED CEMIPLIMAB INFUSION ON DAYS 0, 21, AND 42
     Route: 042

REACTIONS (10)
  - Pemphigoid [Recovered/Resolved]
  - Eczema [Recovered/Resolved]
  - Macule [Recovered/Resolved]
  - Linear IgA disease [Recovered/Resolved]
  - Blister [Recovered/Resolved]
  - Antibody test abnormal [Recovered/Resolved]
  - Eosinophil count increased [Recovered/Resolved]
  - Skin erosion [Recovered/Resolved]
  - Eosinophilia [Recovered/Resolved]
  - Papule [Recovered/Resolved]
